FAERS Safety Report 4754140-8 (Version None)
Quarter: 2005Q3

REPORT INFORMATION
  Report Type: 
  Country: None (occurrence: None)
  Receive Date: 20050826
  Receipt Date: 19970331
  Transmission Date: 20060218
  Serious: Yes (Other)
  Sender: FDA-Public Use
  Company Number: JP-ABBOTT-05P-087-0306540-00

PATIENT
  Age: 65 Year
  Sex: Male

DRUGS (3)
  1. ERYTHROCIN [Suspect]
     Indication: DRUG USE FOR UNKNOWN INDICATION
     Route: 048
     Dates: start: 19970329, end: 19970329
  2. PRANOPROFEN [Concomitant]
     Indication: PHARYNGOLARYNGEAL PAIN
     Route: 048
     Dates: start: 19970329, end: 19970329
  3. COUGHCODE-N [Concomitant]
     Indication: COUGH
     Route: 048
     Dates: start: 19970329, end: 19970329

REACTIONS (4)
  - ANAPHYLACTIC SHOCK [None]
  - CHOKING SENSATION [None]
  - DIARRHOEA [None]
  - GAIT DISTURBANCE [None]
